FAERS Safety Report 7360695-X (Version None)
Quarter: 2011Q1

REPORT INFORMATION
  Report Type: 
  Country: None (occurrence: None)
  Receive Date: 20110318
  Receipt Date: 20091114
  Transmission Date: 20110831
  Serious: Yes (Death, Hospitalization, Other)
  Sender: FDA-Public Use
  Company Number: US-BAYER-200939456NA

PATIENT
  Sex: Male
  Weight: 68.027 kg

DRUGS (20)
  1. TRASYLOL [Suspect]
     Indication: ATRIAL SEPTAL DEFECT REPAIR
  2. COUMADIN [Concomitant]
     Dosage: 10 MG, LONG TERM USE
     Route: 048
  3. HYDROXYCARBAMIDE [Concomitant]
     Dosage: 1000 MG, UNK
     Route: 048
  4. ALLOPURINOL [Concomitant]
     Dosage: 300 MG, UNK
     Route: 048
  5. DIGOXIN [Concomitant]
     Dosage: 0.25 MG, UNK
     Route: 048
  6. ALDACTONE [Concomitant]
     Dosage: 25 MG, UNK
     Route: 048
  7. ASPIRIN [Concomitant]
     Dosage: 81 MG, UNK
     Route: 048
  8. TRASYLOL [Suspect]
     Indication: TRICUSPID VALVE REPAIR
  9. LISINOPRIL [Concomitant]
     Dosage: 10 MG, UNK
     Route: 048
  10. ISORDIL [Concomitant]
     Dosage: 10 MG, UNK
     Route: 048
  11. TRASYLOL [Suspect]
     Indication: CORONARY ARTERY BYPASS
     Route: 042
     Dates: start: 20051101
  12. LASIX [Concomitant]
     Dosage: 120 MG, UNK
     Route: 048
  13. INDOMETHACIN [Concomitant]
     Dosage: 75 MG, UNK
     Route: 048
  14. TRASYLOL [Suspect]
     Indication: MITRAL VALVE REPLACEMENT
  15. TRASYLOL [Suspect]
     Indication: CARDIAC ANEURYSM REPAIR
  16. PLAVIX [Concomitant]
     Dosage: 75 MG, UNK
     Route: 048
  17. TOPROL-XL [Concomitant]
     Dosage: ONE
     Route: 048
  18. SINGULAIR [Concomitant]
     Dosage: 10 MG, UNK
     Route: 048
  19. COREG [Concomitant]
     Dosage: 12.5 MG, UNK
     Route: 048
  20. CEFTIN [Concomitant]
     Dosage: 1000 MG, UNK
     Route: 048

REACTIONS (15)
  - ANXIETY [None]
  - PAIN [None]
  - STRESS [None]
  - RENAL TUBULAR NECROSIS [None]
  - DEATH [None]
  - EMOTIONAL DISTRESS [None]
  - UNEVALUABLE EVENT [None]
  - INJURY [None]
  - FEAR [None]
  - RENAL FAILURE ACUTE [None]
  - RENAL INJURY [None]
  - RENAL FAILURE [None]
  - RENAL IMPAIRMENT [None]
  - ANHEDONIA [None]
  - CEREBROVASCULAR ACCIDENT [None]
